FAERS Safety Report 12249461 (Version 3)
Quarter: 2020Q1

REPORT INFORMATION
  Report Type: Spontaneous
  Country: US (occurrence: US)
  Receive Date: 20160408
  Receipt Date: 20200225
  Transmission Date: 20200409
  Serious: Yes (Death, Hospitalization)
  Sender: FDA-Public Use
  Company Number: US-JNJFOC-20160402706

PATIENT
  Age: 72 Year
  Sex: Female

DRUGS (2)
  1. XARELTO [Suspect]
     Active Substance: RIVAROXABAN
     Indication: ATRIAL FIBRILLATION
     Dosage: 20MG, 10MG, 5MG?THERAPY END DATE: /MAR/2015
     Route: 048
     Dates: start: 20140714
  2. XARELTO [Suspect]
     Active Substance: RIVAROXABAN
     Indication: CEREBROVASCULAR ACCIDENT PROPHYLAXIS

REACTIONS (7)
  - Pneumonia [Fatal]
  - Incorrect dose administered [Unknown]
  - Haematuria [Unknown]
  - Off label use [Unknown]
  - Wrong technique in product usage process [Unknown]
  - Pleural effusion [Fatal]
  - Respiratory failure [Fatal]

NARRATIVE: CASE EVENT DATE: 201502
